FAERS Safety Report 9287814 (Version 3)
Quarter: 2013Q3

REPORT INFORMATION
  Report Type: Spontaneous
  Country: IL (occurrence: IL)
  Receive Date: 20130514
  Receipt Date: 20130809
  Transmission Date: 20140515
  Serious: Yes (Hospitalization)
  Sender: FDA-Public Use
  Company Number: IL-NOVOPROD-377355

PATIENT
  Sex: Female

DRUGS (1)
  1. NORDITROPIN SIMPLEXX [Suspect]
     Indication: TURNER^S SYNDROME
     Dosage: 0.5 MG, QD
     Route: 065

REACTIONS (1)
  - Intraocular pressure increased [Recovered/Resolved]
